FAERS Safety Report 8549475 (Version 3)
Quarter: 2012Q4

REPORT INFORMATION
  Report Type: Spontaneous
  Country: US (occurrence: None)
  Receive Date: 20120417
  Receipt Date: 20120924
  Transmission Date: 20130627
  Serious: Yes (Life-Threatening, Hospitalization, Other)
  Sender: FDA-Public Use
  Company Number: 2012031853

PATIENT
  Sex: Male
  Weight: 29.03 kg

DRUGS (3)
  1. PRIVIGEN [Suspect]
     Indication: GUILLAIN-BARRE SYNDROME
     Dosage: 2 G/KG IN 2 DAYs
     Route: 042
     Dates: start: 20120321, end: 20120322
  2. PRIVIGEN [Suspect]
     Indication: GUILLAIN-BARRE SYNDROME
     Route: 042
  3. HUMAN IMMUNOGLOBULIN G [Suspect]

REACTIONS (13)
  - Splenic rupture [None]
  - Off label use [None]
  - Haematocrit decreased [None]
  - Haemorrhage [None]
  - Constipation [None]
  - Rectal tenesmus [None]
  - Dizziness [None]
  - Hyperhidrosis [None]
  - Asthenia [None]
  - Chest pain [None]
  - Medication error [None]
  - Heart rate decreased [None]
  - Chest pain [None]
